FAERS Safety Report 21994403 (Version 2)
Quarter: 2023Q1

REPORT INFORMATION
  Report Type: Spontaneous
  Country: US (occurrence: US)
  Receive Date: 20230215
  Receipt Date: 20230223
  Transmission Date: 20230417
  Serious: Yes (Death)
  Sender: FDA-Public Use
  Company Number: US-PTC THERAPEUTICS INC.-US-2023PTC000229

PATIENT
  Age: 13 Year
  Sex: Male
  Weight: 49.206 kg

DRUGS (1)
  1. EMFLAZA [Suspect]
     Active Substance: DEFLAZACORT
     Indication: Muscular dystrophy
     Dosage: 1.5 MILLILITER, QD
     Route: 048

REACTIONS (1)
  - Death [Fatal]

NARRATIVE: CASE EVENT DATE: 20230131
